FAERS Safety Report 24746043 (Version 1)
Quarter: 2024Q4

REPORT INFORMATION
  Report Type: Spontaneous
  Country: CA (occurrence: CA)
  Receive Date: 20241218
  Receipt Date: 20241218
  Transmission Date: 20250115
  Serious: Yes (Other)
  Sender: CELLTRION
  Company Number: CA-PFIZER INC-202400306354

PATIENT

DRUGS (3)
  1. INFLECTRA [Suspect]
     Active Substance: INFLIXIMAB-DYYB
     Indication: Ankylosing spondylitis
     Dosage: 300 MG, WEEK 0.2.6 THEN Q 8 WEEKS
     Route: 042
     Dates: start: 20241004
  2. CELEBREX [Concomitant]
     Active Substance: CELECOXIB
     Dosage: 200 MG
     Route: 065
  3. EFFEXOR [Concomitant]
     Active Substance: VENLAFAXINE HYDROCHLORIDE
     Dosage: 75 MG
     Route: 048

REACTIONS (7)
  - Pneumonia [Recovering/Resolving]
  - Sinusitis [Not Recovered/Not Resolved]
  - Pharyngitis [Recovering/Resolving]
  - Breast cancer female [Unknown]
  - Fatigue [Unknown]
  - Joint swelling [Unknown]
  - Condition aggravated [Not Recovered/Not Resolved]

NARRATIVE: CASE EVENT DATE: 20240101
